FAERS Safety Report 21418375 (Version 1)
Quarter: 2022Q4

REPORT INFORMATION
  Report Type: Spontaneous
  Country: DE (occurrence: DE)
  Receive Date: 20221006
  Receipt Date: 20221006
  Transmission Date: 20230112
  Serious: Yes (Other)
  Sender: FDA-Public Use
  Company Number: DE-EXELTIS PHARMACEUTICAL HOLDING, S.L.-2209DE03710

PATIENT
  Sex: Female

DRUGS (3)
  1. PROGESTERONE [Suspect]
     Active Substance: PROGESTERONE
     Indication: Product used for unknown indication
     Dosage: UNK
     Route: 067
  2. PROGESTERONE [Suspect]
     Active Substance: PROGESTERONE
     Dosage: 1 DOSAGE FORM, SINGLE
     Route: 048
     Dates: start: 20220913
  3. IVABRADINE [Concomitant]
     Active Substance: IVABRADINE
     Dosage: UNK

REACTIONS (4)
  - Exophthalmos [Recovered/Resolved]
  - Dizziness [Recovered/Resolved]
  - Visual impairment [Recovered/Resolved]
  - Off label use [Unknown]
